FAERS Safety Report 25504482 (Version 1)
Quarter: 2025Q3

REPORT INFORMATION
  Report Type: Spontaneous
  Country: CN (occurrence: CN)
  Receive Date: 20250702
  Receipt Date: 20250702
  Transmission Date: 20251021
  Serious: Yes (Other)
  Sender: PFIZER
  Company Number: CN-PFIZER INC-PV202500077051

PATIENT
  Age: 55 Year
  Sex: Female
  Weight: 55 kg

DRUGS (3)
  1. ZYVOX [Suspect]
     Active Substance: LINEZOLID
     Indication: Intracranial infection
     Dosage: 0.6 G, 2X/DAY
     Route: 041
     Dates: start: 20250612, end: 20250625
  2. ZYVOX [Suspect]
     Active Substance: LINEZOLID
     Indication: Hypertension
  3. ZYVOX [Suspect]
     Active Substance: LINEZOLID
     Indication: Brain neoplasm malignant

REACTIONS (5)
  - Nausea [Recovering/Resolving]
  - Vomiting [Recovering/Resolving]
  - Gastrooesophageal reflux disease [Recovering/Resolving]
  - Dyspepsia [Recovering/Resolving]
  - Off label use [Unknown]

NARRATIVE: CASE EVENT DATE: 20250612
